FAERS Safety Report 10211338 (Version 3)
Quarter: 2014Q2

REPORT INFORMATION
  Report Type: Spontaneous
  Country: CZ (occurrence: CZ)
  Receive Date: 20140602
  Receipt Date: 20140620
  Transmission Date: 20141212
  Serious: Yes (Other)
  Sender: FDA-Public Use
  Company Number: CZ-GLAXOSMITHKLINE-B0998459A

PATIENT
  Age: 48 Year
  Sex: Female

DRUGS (5)
  1. REVOLADE [Suspect]
     Indication: IMMUNE THROMBOCYTOPENIC PURPURA
     Dosage: 25MG SEE DOSAGE TEXT
     Route: 065
     Dates: start: 20140317, end: 20140323
  2. REVOLADE [Suspect]
     Indication: IMMUNE THROMBOCYTOPENIC PURPURA
     Dosage: 50MG PER DAY
     Route: 065
     Dates: start: 20140324, end: 20140331
  3. REVOLADE [Suspect]
     Indication: IMMUNE THROMBOCYTOPENIC PURPURA
     Dosage: 75MG PER DAY
     Route: 065
     Dates: start: 20140401
  4. CALCIUM [Concomitant]
  5. VIGANTOL [Concomitant]

REACTIONS (1)
  - Hyperthyroidism [Not Recovered/Not Resolved]
